FAERS Safety Report 4333461-7 (Version None)
Quarter: 2004Q1

REPORT INFORMATION
  Report Type: 
  Country: None (occurrence: None)
  Receive Date: 20040329
  Receipt Date: 20040205
  Transmission Date: 20041129
  Serious: No
  Sender: FDA-Public Use
  Company Number: 04P-163-0250053-00

PATIENT
  Sex: Male

DRUGS (2)
  1. HUMIRA [Suspect]
     Indication: RHEUMATOID ARTHRITIS
     Dosage: 40 MG, 1 IN 2 WK, SUBCUTANEOUS
     Route: 058
     Dates: start: 20031217
  2. PREDNISONE [Concomitant]

REACTIONS (4)
  - DYSPEPSIA [None]
  - FLUSHING [None]
  - NERVOUSNESS [None]
  - STOMACH DISCOMFORT [None]
